FAERS Safety Report 14871122 (Version 1)
Quarter: 2018Q2

REPORT INFORMATION
  Report Type: Spontaneous
  Country: US (occurrence: US)
  Receive Date: 20180424
  Receipt Date: 20180424
  Transmission Date: 20180711
  Serious: Yes (Other)
  Sender: FDA-Public Use
  Company Number: None

PATIENT
  Age: 49 Year
  Sex: Female
  Weight: 65.7 kg

DRUGS (7)
  1. CALCIUM [Concomitant]
     Active Substance: CALCIUM
  2. OMEGA 3 FISH OIL [Concomitant]
     Active Substance: FISH OIL\OMEGA-3 FATTY ACIDS
  3. COQ10 [Concomitant]
     Active Substance: UBIDECARENONE
  4. TURMERIC CURCUMIN [Concomitant]
     Active Substance: HERBALS\TURMERIC
  5. DYSPORT [Suspect]
     Active Substance: ABOBOTULINUMTOXINA
     Indication: SKIN WRINKLING
     Dates: start: 20180418
  6. GINGER. [Concomitant]
     Active Substance: GINGER
  7. RED RICE YEAST [Concomitant]
     Active Substance: DIETARY SUPPLEMENT

REACTIONS (1)
  - Blepharochalasis [None]

NARRATIVE: CASE EVENT DATE: 20180421
